FAERS Safety Report 8125339-8 (Version None)
Quarter: 2012Q1

REPORT INFORMATION
  Report Type: 
  Country: None (occurrence: None)
  Receive Date: 20120209
  Receipt Date: 20120206
  Transmission Date: 20120608
  Serious: Yes (Congenital Anomaly)
  Sender: FDA-Public Use
  Company Number: US-GLAXOSMITHKLINE-A0963958A

PATIENT
  Sex: Female

DRUGS (3)
  1. VITAMIN AND MINERAL PRENATAL SUPPLEMENT W/ FOLIC ACID CAP [Concomitant]
     Route: 064
  2. IRON [Concomitant]
     Dosage: 325MG PER DAY
     Route: 064
  3. PAXIL [Suspect]
     Indication: PRODUCT USED FOR UNKNOWN INDICATION
     Dosage: 20MG PER DAY
     Route: 064

REACTIONS (5)
  - ATTENTION DEFICIT/HYPERACTIVITY DISORDER [None]
  - CARDIOMEGALY [None]
  - FOETAL EXPOSURE DURING PREGNANCY [None]
  - ATRIAL SEPTAL DEFECT [None]
  - CARDIAC MURMUR [None]
